FAERS Safety Report 11442490 (Version 1)
Quarter: 2015Q3

REPORT INFORMATION
  Report Type: Spontaneous
  Country: US (occurrence: None)
  Receive Date: 20150901
  Receipt Date: 20150901
  Transmission Date: 20151125
  Serious: Yes (Other)
  Sender: FDA-Public Use
  Company Number: ADR-2015-01257

PATIENT
  Age: 41 Year
  Sex: Female

DRUGS (2)
  1. COMPOUNDED BACLOFEN INTRATHECAL 4500 MG/ML [Suspect]
     Active Substance: BACLOFEN
     Indication: MUSCLE SPASTICITY
     Dosage: 2039.9 MG/DAY
  2. CLONIDINE INTRATHECAL - 125.0 MG/ML [Suspect]
     Active Substance: CLONIDINE
     Dosage: 56.67 MG/DAY

REACTIONS (3)
  - Medical device site pruritus [None]
  - Medical device site exfoliation [None]
  - Pocket erosion [None]
